FAERS Safety Report 9525613 (Version 1)
Quarter: 2013Q1

REPORT INFORMATION
  Report Type: Spontaneous
  Country: US (occurrence: None)
  Receive Date: 20130305
  Receipt Date: 20130305
  Transmission Date: 20140127
  Serious: Yes (Hospitalization, Other)
  Sender: FDA-Public Use
  Company Number: 163-21880-12023088

PATIENT
  Age: 55 Year
  Sex: Male

DRUGS (14)
  1. REVLIMID [Suspect]
     Indication: PLASMA CELL MYELOMA
     Dosage: 25 MG, DAILY FOR 14 DAYS, THEN 7 DAYS OFF, PO
     Route: 048
     Dates: start: 20111223, end: 20120315
  2. CYCLOPHOSPHAMIDE (UNKNOWN)? [Concomitant]
  3. ASPIRIN (ACETYSALICYLIC ACID) (UNKNOWN) [Concomitant]
  4. MULTAQ (DRONEDARONE HYDROCHLORIDE) (UNKNOWN) [Concomitant]
  5. METOPROLOL XL (METOPROLOL) (UNKNOWN) [Concomitant]
  6. ALLOPURINOL (ALLOPURINOL) (UNKNOWN) [Concomitant]
  7. ACYCLOVIR (ACICLOVIR) (UNKNOWN) [Concomitant]
  8. LOSARTAN-HYDROCHLORIOTHIAZIDE (HYDROCHLOROTHIAZIDE W/ LOSARTAN) (UNKNOWN)? [Concomitant]
  9. MULTIVITAMINS (MULTIVITAMINS) (UNKNOWN)? [Concomitant]
  10. AMBIEN (ZOLPIDEM TARTRATE) (UNKNOWN) [Concomitant]
  11. CALCIUM (CALCIUM) (UNKNOWN) [Concomitant]
  12. TRIMETHOPRIM SULFAMETHOXAZOLE (BACTRIM) (UNKNOWN) [Concomitant]
  13. VELCADE [Concomitant]
  14. DEXAMETHASONE (DEXAMETHASONE) [Concomitant]

REACTIONS (2)
  - Atrial fibrillation [None]
  - Neutropenia [None]
